FAERS Safety Report 9473848 (Version 1)
Quarter: 2013Q3

REPORT INFORMATION
  Report Type: Spontaneous
  Country: US (occurrence: US)
  Receive Date: 20130823
  Receipt Date: 20130823
  Transmission Date: 20140515
  Serious: No
  Sender: FDA-Public Use
  Company Number: US-BRISTOL-MYERS SQUIBB COMPANY-17049396

PATIENT
  Age: 68 Year
  Sex: Male

DRUGS (4)
  1. SPRYCEL (CML) TABS 100 MG [Suspect]
  2. AMBIEN [Concomitant]
  3. XANAX [Concomitant]
  4. BACTRIM [Concomitant]

REACTIONS (5)
  - Pain [Recovering/Resolving]
  - Headache [Unknown]
  - Insomnia [Not Recovered/Not Resolved]
  - Fatigue [Unknown]
  - Abdominal symptom [Unknown]
